FAERS Safety Report 5939352-X (Version None)
Quarter: 2008Q4

REPORT INFORMATION
  Report Type: 
  Country: None (occurrence: None)
  Receive Date: 20081103
  Receipt Date: 20081030
  Transmission Date: 20090506
  Serious: Yes (Other)
  Sender: FDA-Public Use
  Company Number: AU-B.I. PHARMACEUTICALS,INC./RIDGEFIELD-2008-BP-16516AU

PATIENT
  Sex: Male

DRUGS (9)
  1. SPIRIVA [Suspect]
     Dates: start: 20080701, end: 20081001
  2. ASPIRIN [Concomitant]
     Dosage: 100MG
  3. ISCOVER [Concomitant]
     Dosage: 75MG
  4. METOPROLOL TARTRATE [Concomitant]
     Dosage: 50MG
  5. NEXIUM [Concomitant]
     Dosage: 20MG
  6. ACETAMINOPHEN W/ CODEINE [Concomitant]
  7. ACETAMINOPHEN [Concomitant]
     Dosage: 1995MG
  8. PANAMAX [Concomitant]
  9. ZOCOR [Concomitant]
     Dosage: 40MG

REACTIONS (1)
  - ACUTE MYOCARDIAL INFARCTION [None]
